FAERS Safety Report 7553420-0 (Version None)
Quarter: 2011Q2

REPORT INFORMATION
  Report Type: 
  Country: None (occurrence: None)
  Receive Date: 20110617
  Receipt Date: 20110603
  Transmission Date: 20111010
  Serious: Yes (Other)
  Sender: FDA-Public Use
  Company Number: TW-RANBAXY-2011RR-45381

PATIENT
  Age: 42 Year
  Sex: Male

DRUGS (12)
  1. FLUOXETINE HCL [Suspect]
     Dosage: 80 MG/DAY
  2. QUETIAPINE [Concomitant]
     Indication: PSYCHOTIC DISORDER
  3. ARIPIPRAZOLE [Suspect]
     Indication: HALLUCINATION
  4. QUETIAPINE [Concomitant]
     Indication: OBSESSIVE-COMPULSIVE DISORDER
  5. ARIPIPRAZOLE [Suspect]
     Dosage: 15 UNK, UNK
  6. ARIPIPRAZOLE [Suspect]
     Dosage: UNK
  7. FLUOXETINE HCL [Suspect]
     Indication: OBSESSIVE-COMPULSIVE DISORDER
     Dosage: 60-80 MG/DAY
  8. ARIPIPRAZOLE [Suspect]
     Indication: OBSESSIVE-COMPULSIVE DISORDER
     Dosage: 10 MG/DAY
  9. ARIPIPRAZOLE [Suspect]
     Dosage: 15 MG/DAY
  10. ARIPIPRAZOLE [Suspect]
  11. ARIPIPRAZOLE [Suspect]
     Dosage: 10 MG/DAY
  12. ARIPIPRAZOLE [Suspect]
     Dosage: 20 MG/DAY

REACTIONS (2)
  - LEUKOPENIA [None]
  - DRUG INTERACTION [None]
